FAERS Safety Report 9409399 (Version 4)
Quarter: 2013Q3

REPORT INFORMATION
  Report Type: Spontaneous
  Country: JP (occurrence: JP)
  Receive Date: 20130719
  Receipt Date: 20130917
  Transmission Date: 20140515
  Serious: Yes (Other)
  Sender: FDA-Public Use
  Company Number: JP-ELI_LILLY_AND_COMPANY-JP201307003064

PATIENT
  Age: 75 Year
  Sex: Female
  Weight: 43 kg

DRUGS (7)
  1. FORTEO [Suspect]
     Indication: OSTEOPOROSIS
     Dosage: 20 UG, QD
     Route: 058
     Dates: start: 20130704, end: 20130704
  2. FORTEO [Suspect]
     Dosage: 20 UG, QD
     Route: 058
     Dates: start: 20130709
  3. DIOVAN [Concomitant]
     Dosage: UNK
     Route: 048
     Dates: start: 20100323
  4. PRAVASTATIN [Concomitant]
     Dosage: UNK
     Route: 048
     Dates: start: 2008
  5. BENET [Concomitant]
     Dosage: UNK
     Route: 048
     Dates: start: 2008
  6. GASMOTIN [Concomitant]
     Dosage: UNK
     Route: 048
     Dates: start: 2011
  7. RUEFRIEN [Concomitant]
     Dosage: UNK
     Route: 048
     Dates: start: 2010

REACTIONS (4)
  - Rib fracture [Unknown]
  - Loss of consciousness [Recovered/Resolved]
  - Chest discomfort [Unknown]
  - Fall [Unknown]
